FAERS Safety Report 17912385 (Version 1)
Quarter: 2020Q2

REPORT INFORMATION
  Report Type: Spontaneous
  Country: US (occurrence: US)
  Receive Date: 20200618
  Receipt Date: 20200618
  Transmission Date: 20200714
  Serious: No
  Sender: FDA-Public Use
  Company Number: None

PATIENT
  Age: 71 Year
  Sex: Male
  Weight: 105.75 kg

DRUGS (11)
  1. AMLODIPINE [Concomitant]
     Active Substance: AMLODIPINE BESYLATE
  2. VITAMIN D3 [Concomitant]
     Active Substance: CHOLECALCIFEROL
  3. CARVIDILOL [Concomitant]
  4. ESCITALOPRAM [Concomitant]
     Active Substance: ESCITALOPRAM OXALATE
  5. ATORVASTATIN [Concomitant]
     Active Substance: ATORVASTATIN
  6. LOSARTAN. [Concomitant]
     Active Substance: LOSARTAN
  7. GEMFIBROZIL. [Concomitant]
     Active Substance: GEMFIBROZIL
  8. FISH OIL [Concomitant]
     Active Substance: FISH OIL
  9. INSULIN [Concomitant]
     Active Substance: INSULIN NOS
  10. ASPIRIN. [Concomitant]
     Active Substance: ASPIRIN
  11. METFORMIN [Suspect]
     Active Substance: METFORMIN HYDROCHLORIDE
     Indication: DIABETES MELLITUS
     Route: 048
     Dates: end: 20200501

REACTIONS (2)
  - Diarrhoea [None]
  - Product quality issue [None]

NARRATIVE: CASE EVENT DATE: 20200501
